FAERS Safety Report 13621375 (Version 1)
Quarter: 2017Q2

REPORT INFORMATION
  Report Type: Spontaneous
  Country: US (occurrence: US)
  Receive Date: 20170607
  Receipt Date: 20170607
  Transmission Date: 20170830
  Serious: No
  Sender: FDA-Public Use
  Company Number: US-PFIZER INC-2017246431

PATIENT
  Sex: Female

DRUGS (3)
  1. ESCITALOPRAM [Suspect]
     Active Substance: ESCITALOPRAM OXALATE
     Dosage: UNK
  2. BUSPAR [Suspect]
     Active Substance: BUSPIRONE HYDROCHLORIDE
     Dosage: UNK
  3. SERTRALINE HCL [Suspect]
     Active Substance: SERTRALINE HYDROCHLORIDE
     Dosage: UNK

REACTIONS (2)
  - Drug ineffective [Unknown]
  - Drug hypersensitivity [Unknown]
